FAERS Safety Report 8776649 (Version 2)
Quarter: 2013Q1

REPORT INFORMATION
  Report Type: Spontaneous
  Country: US (occurrence: US)
  Receive Date: 20120911
  Receipt Date: 20130228
  Transmission Date: 20140127
  Serious: Yes (Other)
  Sender: FDA-Public Use
  Company Number: US-ROCHE-1117155

PATIENT
  Age: 56 Year
  Sex: Female

DRUGS (7)
  1. BONIVA [Suspect]
     Indication: OSTEOPOROSIS
     Route: 065
     Dates: start: 1999, end: 2010
  2. BONIVA [Suspect]
     Indication: OSTEOPENIA
     Route: 065
     Dates: start: 2008, end: 2010
  3. BONIVA [Suspect]
     Indication: OSTEITIS DEFORMANS
  4. FOSAMAX [Suspect]
     Indication: OSTEOPOROSIS
     Route: 065
     Dates: start: 1998, end: 2008
  5. FOSAMAX [Suspect]
     Indication: OSTEOPENIA
     Route: 065
     Dates: start: 1999, end: 2010
  6. FOSAMAX [Suspect]
     Indication: OSTEITIS DEFORMANS
  7. FOSAMAX [Suspect]
     Indication: MENOPAUSE

REACTIONS (4)
  - Low turnover osteopathy [Unknown]
  - Femur fracture [Unknown]
  - Emotional distress [Unknown]
  - Depression [Unknown]
